FAERS Safety Report 6100609-3 (Version None)
Quarter: 2009Q1

REPORT INFORMATION
  Report Type: 
  Country: None (occurrence: None)
  Receive Date: 20090227
  Receipt Date: 20090227
  Transmission Date: 20090719
  Serious: Yes (Hospitalization)
  Sender: FDA-Public Use
  Company Number: None

PATIENT
  Age: 43 Year
  Sex: Female
  Weight: 63.5036 kg

DRUGS (1)
  1. CLARITHROMYCIN [Suspect]
     Indication: PNEUMONIA
     Dosage: ONE TABLET EVERY 12 HOURS PO
     Route: 048
     Dates: start: 20090218, end: 20090221

REACTIONS (19)
  - ABNORMAL BEHAVIOUR [None]
  - AGITATION [None]
  - ANXIETY [None]
  - CONVERSION DISORDER [None]
  - CRYING [None]
  - DISORIENTATION [None]
  - DISTURBANCE IN ATTENTION [None]
  - FATIGUE [None]
  - GRUNTING [None]
  - HEAD BANGING [None]
  - INSOMNIA [None]
  - LETHARGY [None]
  - LOGORRHOEA [None]
  - MANIA [None]
  - MYDRIASIS [None]
  - OBSESSIVE-COMPULSIVE DISORDER [None]
  - SCREAMING [None]
  - TACHYPHRENIA [None]
  - THINKING ABNORMAL [None]
